FAERS Safety Report 10596771 (Version 4)
Quarter: 2014Q4

REPORT INFORMATION
  Report Type: Report from Study
  Country: SE (occurrence: SE)
  Receive Date: 20141120
  Receipt Date: 20141224
  Transmission Date: 20150529
  Serious: Yes (Hospitalization)
  Sender: FDA-Public Use
  Company Number: SE-GILEAD-2014-0122351

PATIENT
  Age: 60 Year
  Sex: Male
  Weight: 97 kg

DRUGS (6)
  1. LYRICA [Concomitant]
     Active Substance: PREGABALIN
     Indication: ANXIETY
     Dosage: UNK
     Dates: start: 201404
  2. ZOPIKLON [Concomitant]
     Active Substance: ZOPICLONE
     Indication: INSOMNIA
     Dosage: UNK
     Dates: start: 20141002
  3. IDELALISIB [Suspect]
     Active Substance: IDELALISIB
     Indication: NON-HODGKIN^S LYMPHOMA UNSPECIFIED HISTOLOGY INDOLENT
     Dosage: 100 MG, BID
     Route: 048
     Dates: start: 20141106, end: 20141106
  4. RITUXIMAB [Suspect]
     Active Substance: RITUXIMAB
     Indication: NON-HODGKIN^S LYMPHOMA UNSPECIFIED HISTOLOGY INDOLENT
     Dosage: 800 MG, CYCLICAL
     Route: 042
     Dates: start: 20141013
  5. LOSARTAN [Concomitant]
     Active Substance: LOSARTAN
     Indication: HYPOTONIA
     Dosage: UNK
     Dates: start: 2011
  6. BENDAMUSTINE [Suspect]
     Active Substance: BENDAMUSTINE
     Indication: NON-HODGKIN^S LYMPHOMA UNSPECIFIED HISTOLOGY INDOLENT
     Dosage: 200 MG, CYCLICAL
     Route: 042
     Dates: start: 20141013

REACTIONS (2)
  - Pyrexia [Recovered/Resolved]
  - Gingival pain [Recovered/Resolved]

NARRATIVE: CASE EVENT DATE: 20141106
